FAERS Safety Report 23655447 (Version 1)
Quarter: 2024Q1

REPORT INFORMATION
  Report Type: Spontaneous
  Country: US (occurrence: US)
  Receive Date: 20240320
  Receipt Date: 20240320
  Transmission Date: 20240409
  Serious: Yes (Other)
  Sender: FDA-Public Use
  Company Number: US-ABBVIE-5686268

PATIENT
  Sex: Female

DRUGS (2)
  1. LUPRON [Suspect]
     Active Substance: LEUPROLIDE ACETATE
     Indication: Product used for unknown indication
     Route: 065
  2. SYNAREL [Suspect]
     Active Substance: NAFARELIN ACETATE
     Indication: Endometriosis
     Route: 065
     Dates: start: 2003

REACTIONS (11)
  - Umbilical hernia [Unknown]
  - Amenorrhoea [Unknown]
  - Pain [Unknown]
  - Endometriosis [Unknown]
  - Haemorrhage [Unknown]
  - Endometriosis [Recovered/Resolved]
  - Endometriosis [Recovered/Resolved]
  - Endometriosis [Recovered/Resolved]
  - Post procedural complication [Unknown]
  - Uterine haemorrhage [Recovered/Resolved]
  - Uterine haemorrhage [Unknown]

NARRATIVE: CASE EVENT DATE: 20030101
